FAERS Safety Report 23740990 (Version 1)
Quarter: 2024Q2

REPORT INFORMATION
  Report Type: Spontaneous
  Country: US (occurrence: US)
  Receive Date: 20240415
  Receipt Date: 20240415
  Transmission Date: 20240715
  Serious: No
  Sender: FDA-Public Use
  Company Number: US-TEVA-VS-3175848

PATIENT

DRUGS (1)
  1. AMBRISENTAN [Suspect]
     Active Substance: AMBRISENTAN
     Indication: Product used for unknown indication
     Dosage: 1/2 A TABLET ONCE A DAY
     Route: 048

REACTIONS (3)
  - Product prescribing error [Unknown]
  - Product prescribing issue [Unknown]
  - Intercepted product dispensing error [Unknown]
